FAERS Safety Report 9423751 (Version 1)
Quarter: 2013Q3

REPORT INFORMATION
  Report Type: Spontaneous
  Country: CA (occurrence: CA)
  Receive Date: 20130728
  Receipt Date: 20130728
  Transmission Date: 20140515
  Serious: Yes (Life-Threatening, Hospitalization, Other)
  Sender: FDA-Public Use
  Company Number: PHHY2013CA079547

PATIENT
  Age: 43 Year
  Sex: Female
  Weight: 58.5 kg

DRUGS (3)
  1. FORADIL [Suspect]
     Dosage: 12 UG, QID (4 EVERY 1 DAY)
  2. PREDNISONE [Concomitant]
     Dosage: UNK
  3. VENTOLIN                           /00942701/ [Concomitant]
     Dosage: UNK

REACTIONS (6)
  - Nodule [Not Recovered/Not Resolved]
  - Quality of life decreased [Not Recovered/Not Resolved]
  - Weight decreased [Not Recovered/Not Resolved]
  - Hypertension [Not Recovered/Not Resolved]
  - Blood potassium decreased [Not Recovered/Not Resolved]
  - Bronchospasm [Not Recovered/Not Resolved]
